FAERS Safety Report 12227355 (Version 1)
Quarter: 2016Q1

REPORT INFORMATION
  Report Type: Spontaneous
  Country: TR (occurrence: TR)
  Receive Date: 20160331
  Receipt Date: 20160331
  Transmission Date: 20160526
  Serious: Yes (Death)
  Sender: FDA-Public Use
  Company Number: TR-BAUSCH-BL-2016-007312

PATIENT
  Age: 23 Year
  Sex: Female

DRUGS (5)
  1. SOTALOL. [Suspect]
     Active Substance: SOTALOL
     Indication: COMPLETED SUICIDE
     Dosage: EMPTY BOXES OF 20 TABLETS
     Route: 065
  2. MIDAZOLAM [Suspect]
     Active Substance: MIDAZOLAM\MIDAZOLAM HYDROCHLORIDE
     Indication: COMPLETED SUICIDE
     Route: 065
  3. ATROPINE. [Suspect]
     Active Substance: ATROPINE
     Indication: COMPLETED SUICIDE
     Route: 065
  4. FLECAINIDE [Suspect]
     Active Substance: FLECAINIDE
     Indication: COMPLETED SUICIDE
     Dosage: EMPTY BOXES OF 30 TABLETS
     Route: 065
  5. LIDOCAINE. [Suspect]
     Active Substance: LIDOCAINE
     Indication: COMPLETED SUICIDE
     Route: 065

REACTIONS (6)
  - Hyperaemia [Fatal]
  - Cardiac arrest [Fatal]
  - Overdose [Fatal]
  - Cerebral congestion [Fatal]
  - Toxicity to various agents [Fatal]
  - Coma [Fatal]
